FAERS Safety Report 20619213 (Version 3)
Quarter: 2022Q2

REPORT INFORMATION
  Report Type: Report from Study
  Country: US (occurrence: US)
  Receive Date: 20220322
  Receipt Date: 20220430
  Transmission Date: 20220720
  Serious: No
  Sender: FDA-Public Use
  Company Number: US-NOVARTISTESTPH-NVSC2022US063061

PATIENT
  Age: 77 Year
  Sex: Male

DRUGS (1)
  1. ENTRESTO [Suspect]
     Active Substance: SACUBITRIL\VALSARTAN
     Indication: Product used for unknown indication
     Dosage: 1 DOSAGE FORM, BID (24/26MG)
     Route: 048
     Dates: start: 202201

REACTIONS (5)
  - Heart valve incompetence [Unknown]
  - Heart rate decreased [Not Recovered/Not Resolved]
  - Haemoglobin decreased [Unknown]
  - Blood pressure abnormal [Recovering/Resolving]
  - Heart rate abnormal [Not Recovered/Not Resolved]
